FAERS Safety Report 22213827 (Version 1)
Quarter: 2023Q2

REPORT INFORMATION
  Report Type: Spontaneous
  Country: CN (occurrence: CN)
  Receive Date: 20230414
  Receipt Date: 20230414
  Transmission Date: 20230721
  Serious: Yes (Hospitalization)
  Sender: FDA-Public Use
  Company Number: CN-FreseniusKabi-FK202304612

PATIENT
  Age: 74 Year
  Sex: Female
  Weight: 64 kg

DRUGS (3)
  1. OMEGAVEN [Suspect]
     Active Substance: FISH OIL
     Indication: Nutritional supplementation
     Dosage: FORM OF ADMIN INJECTION
     Route: 041
     Dates: start: 20190829, end: 20190831
  2. PHOSPHOLIPID [Suspect]
     Active Substance: PHOSPHOLIPID
     Indication: Symptomatic treatment
     Dosage: FORM OF ADMIN INJECTION
     Route: 041
     Dates: start: 20190829, end: 20190831
  3. DEXTROSE [Concomitant]
     Active Substance: DEXTROSE\DEXTROSE MONOHYDRATE
     Indication: Vehicle solution use
     Dosage: FORM OF ADMIN INJECTION
     Route: 041
     Dates: start: 20190829, end: 20190831

REACTIONS (2)
  - Pruritus [Recovered/Resolved]
  - Rash [Recovered/Resolved]

NARRATIVE: CASE EVENT DATE: 20190831
